FAERS Safety Report 6720677-5 (Version None)
Quarter: 2010Q2

REPORT INFORMATION
  Report Type: 
  Country: None (occurrence: None)
  Receive Date: 20100510
  Receipt Date: 20100429
  Transmission Date: 20101027
  Serious: Yes (Other)
  Sender: FDA-Public Use
  Company Number: 2010US001133

PATIENT
  Age: 76 Year
  Sex: Female

DRUGS (6)
  1. LEXISCAN [Suspect]
     Indication: SCAN MYOCARDIAL PERFUSION
     Dosage: IV NOS
     Route: 042
     Dates: start: 20100326, end: 20100326
  2. BLOOD PRESSURE MEDICATION FORMULATION UNKNOWN [Concomitant]
  3. THYROID MEDICATION FORMULATION UNKNOWN [Concomitant]
  4. DIOVAN HCT [Concomitant]
  5. ATENOLOL [Concomitant]
  6. TRIAMTERENE AND HYDROCHLOROTHIAZIDE (HYDROCHLOROTHIAZIDE, TRIAMTERENE) [Concomitant]

REACTIONS (8)
  - DYSARTHRIA [None]
  - DYSPHONIA [None]
  - DYSPNOEA [None]
  - ERUCTATION [None]
  - HYPERSENSITIVITY [None]
  - INFLAMMATION [None]
  - NO THERAPEUTIC RESPONSE [None]
  - SOMNOLENCE [None]
